FAERS Safety Report 13184933 (Version 1)
Quarter: 2017Q1

REPORT INFORMATION
  Report Type: Spontaneous
  Country: US (occurrence: US)
  Receive Date: 20170203
  Receipt Date: 20170203
  Transmission Date: 20170428
  Serious: No
  Sender: FDA-Public Use
  Company Number: GXBR2016US003286

PATIENT
  Sex: Female

DRUGS (4)
  1. AMANTADINE SANDOZ [Suspect]
     Active Substance: AMANTADINE
     Indication: TREMOR
     Dosage: 100 MG, TID
     Route: 048
     Dates: start: 2016
  2. LISINOPRIL. [Concomitant]
     Active Substance: LISINOPRIL
     Dosage: UNK DF, UNK
  3. PLAVIX [Concomitant]
     Active Substance: CLOPIDOGREL BISULFATE
     Dosage: UNK DF, UNK
     Route: 065
  4. EMSAM [Concomitant]
     Active Substance: SELEGILINE
     Dosage: UNK DF, UNK
     Route: 065

REACTIONS (2)
  - Dermatitis contact [Recovered/Resolved]
  - Rash [Recovered/Resolved]
